FAERS Safety Report 5037155-4 (Version None)
Quarter: 2006Q2

REPORT INFORMATION
  Report Type: 
  Country: None (occurrence: None)
  Receive Date: 20060616
  Receipt Date: 20060406
  Transmission Date: 20061013
  Serious: No
  Sender: FDA-Public Use
  Company Number: 2006RL000128

PATIENT
  Age: 77 Year
  Sex: Male
  Weight: 74.8435 kg

DRUGS (4)
  1. OMACOR [Suspect]
     Indication: BLOOD TRIGLYCERIDES INCREASED
     Dosage: TID PO
     Route: 048
     Dates: start: 20060327, end: 20060401
  2. TOPROL-XL [Concomitant]
  3. DIGOXIN [Concomitant]
  4. SYNTHROID [Concomitant]

REACTIONS (5)
  - DIZZINESS [None]
  - DRUG INTOLERANCE [None]
  - DYSPHAGIA [None]
  - NAUSEA [None]
  - SWOLLEN TONGUE [None]
